FAERS Safety Report 6827536-8 (Version None)
Quarter: 2010Q3

REPORT INFORMATION
  Report Type: 
  Country: None (occurrence: None)
  Receive Date: 20100709
  Receipt Date: 20070116
  Transmission Date: 20110219
  Serious: No
  Sender: FDA-Public Use
  Company Number: US-PFIZER INC-2007005133

PATIENT
  Sex: Male
  Weight: 87.09 kg

DRUGS (2)
  1. CHANTIX [Suspect]
     Indication: SMOKING CESSATION THERAPY
     Dates: start: 20070108
  2. AMBIEN [Concomitant]
     Indication: SLEEP DISORDER

REACTIONS (3)
  - ABNORMAL DREAMS [None]
  - FATIGUE [None]
  - MALAISE [None]
